FAERS Safety Report 13211700 (Version 6)
Quarter: 2017Q2

REPORT INFORMATION
  Report Type: Report from Study
  Country: US (occurrence: US)
  Receive Date: 20170210
  Receipt Date: 20170622
  Transmission Date: 20170830
  Serious: Yes (Other)
  Sender: FDA-Public Use
  Company Number: US-PFIZER INC-2017018723

PATIENT
  Age: 61 Year
  Sex: Female

DRUGS (3)
  1. IBRANCE [Suspect]
     Active Substance: PALBOCICLIB
     Dosage: 125 MG, 1X/DAY
     Route: 048
     Dates: start: 20161213, end: 20170505
  2. IBRANCE [Suspect]
     Active Substance: PALBOCICLIB
     Dosage: 100 MG, CYCLIC (DAILY FOR 21 DAYS AND OFF FOR 7 DAYS)
     Route: 048
     Dates: start: 20170512
  3. IBRANCE [Suspect]
     Active Substance: PALBOCICLIB
     Indication: BREAST CANCER METASTATIC
     Dosage: 125 MG, 1X/DAY
     Route: 048
     Dates: start: 20161231, end: 20170131

REACTIONS (17)
  - Seizure [Recovered/Resolved]
  - Alopecia [Recovering/Resolving]
  - Vomiting [Recovering/Resolving]
  - Decreased appetite [Unknown]
  - Pyrexia [Unknown]
  - Rib fracture [Not Recovered/Not Resolved]
  - Weight decreased [Unknown]
  - Migraine [Not Recovered/Not Resolved]
  - Headache [Unknown]
  - Dehydration [Unknown]
  - Fatigue [Recovering/Resolving]
  - Pain [Recovered/Resolved]
  - Neoplasm progression [Unknown]
  - Nausea [Recovering/Resolving]
  - Blood calcium decreased [Recovering/Resolving]
  - Leukopenia [Recovering/Resolving]
  - Loss of consciousness [Recovered/Resolved]

NARRATIVE: CASE EVENT DATE: 20170131
